FAERS Safety Report 11243341 (Version 7)
Quarter: 2016Q3

REPORT INFORMATION
  Report Type: Report from Study
  Country: US (occurrence: US)
  Receive Date: 20150707
  Receipt Date: 20160812
  Transmission Date: 20161109
  Serious: Yes (Hospitalization, Other)
  Sender: FDA-Public Use
  Company Number: US-SA-2015SA096548

PATIENT
  Age: 29 Year
  Sex: Female

DRUGS (2)
  1. HEPARIN [Concomitant]
     Active Substance: HEPARIN SODIUM
     Dates: start: 201508
  2. LEMTRADA [Suspect]
     Active Substance: ALEMTUZUMAB
     Indication: MULTIPLE SCLEROSIS
     Route: 041
     Dates: start: 20150518, end: 20150522

REACTIONS (21)
  - Gait disturbance [Recovered/Resolved]
  - Blood glucose increased [Recovering/Resolving]
  - Therapeutic response decreased [Unknown]
  - Hemiparesis [Recovering/Resolving]
  - Abdominal distension [Not Recovered/Not Resolved]
  - Condition aggravated [Recovered/Resolved]
  - Haemoglobin decreased [Unknown]
  - Arthralgia [Unknown]
  - Hypoaesthesia [Not Recovered/Not Resolved]
  - Rash pruritic [Recovered/Resolved]
  - Feeling hot [Recovered/Resolved]
  - Limb discomfort [Recovered/Resolved]
  - Rash [Recovered/Resolved]
  - Fall [Unknown]
  - Haematoma [Unknown]
  - Bone pain [Not Recovered/Not Resolved]
  - Balance disorder [Recovered/Resolved]
  - Multiple sclerosis relapse [Unknown]
  - Temperature intolerance [Not Recovered/Not Resolved]
  - Back pain [Unknown]
  - Hypertension [Unknown]

NARRATIVE: CASE EVENT DATE: 2015
